FAERS Safety Report 21667631 (Version 1)
Quarter: 2022Q4

REPORT INFORMATION
  Report Type: Spontaneous
  Country: SK (occurrence: SK)
  Receive Date: 20221201
  Receipt Date: 20221201
  Transmission Date: 20230112
  Serious: Yes (Death, Other)
  Sender: FDA-Public Use
  Company Number: SK-SA-SAC20221201000345

PATIENT

DRUGS (2)
  1. ALEMTUZUMAB [Suspect]
     Active Substance: ALEMTUZUMAB
     Indication: Multiple sclerosis
     Route: 065
  2. NATALIZUMAB [Suspect]
     Active Substance: NATALIZUMAB

REACTIONS (1)
  - Progressive multifocal leukoencephalopathy [Fatal]
